FAERS Safety Report 4984494-9 (Version None)
Quarter: 2006Q2

REPORT INFORMATION
  Report Type: 
  Country: None (occurrence: None)
  Receive Date: 20060421
  Receipt Date: 20060408
  Transmission Date: 20061013
  Serious: Yes (Hospitalization)
  Sender: FDA-Public Use
  Company Number: 2005136035

PATIENT
  Age: 76 Year
  Sex: Female
  Weight: 63.5036 kg

DRUGS (6)
  1. DETROL LA [Suspect]
     Indication: URINARY INCONTINENCE
     Dosage: 4 MG (4 MG, 1 IN 1 D) ORAL
     Route: 048
     Dates: start: 20050801, end: 20050101
  2. ALL OTHER THERAPEUTIC PRODUCTS (ALL OTHER THERAPEUTIC PRODUCTS) [Suspect]
     Indication: ILL-DEFINED DISORDER
     Dosage: TOPICAL
     Route: 061
  3. CIPROFLOXACIN [Suspect]
     Indication: ILL-DEFINED DISORDER
  4. WARFARIN SODIUM [Concomitant]
  5. METOPROLOL SUCCINATE [Concomitant]
  6. VYTORIN [Concomitant]

REACTIONS (7)
  - BLOOD CREATININE INCREASED [None]
  - BLOOD PRESSURE INCREASED [None]
  - DRUG INEFFECTIVE [None]
  - DRY MOUTH [None]
  - OEDEMA PERIPHERAL [None]
  - PAIN [None]
  - RASH [None]
